FAERS Safety Report 9078832 (Version 1)
Quarter: 2013Q1

REPORT INFORMATION
  Report Type: Report from Study
  Country: US (occurrence: US)
  Receive Date: 20130130
  Receipt Date: 20130130
  Transmission Date: 20140127
  Serious: No
  Sender: FDA-Public Use
  Company Number: US-ABBOTT-12P-163-0965618-00

PATIENT
  Age: 50 Year
  Sex: Female

DRUGS (3)
  1. HUMIRA 40 MG/0.8 ML PEN [Suspect]
     Indication: PSORIASIS
     Dates: start: 20120602
  2. WELLBUTRIN [Concomitant]
     Indication: DEPRESSION
  3. EFFEXOR ER [Concomitant]
     Indication: DEPRESSION

REACTIONS (2)
  - Psoriasis [Not Recovered/Not Resolved]
  - Pruritus [Recovering/Resolving]
